FAERS Safety Report 17763422 (Version 1)
Quarter: 2020Q2

REPORT INFORMATION
  Report Type: Report from Study
  Country: IT (occurrence: IT)
  Receive Date: 20200509
  Receipt Date: 20200509
  Transmission Date: 20200714
  Serious: Yes (Hospitalization)
  Sender: FDA-Public Use
  Company Number: IT-TEVA-2020-IT-1232210

PATIENT
  Age: 79 Year
  Sex: Male

DRUGS (12)
  1. LORTAAN 50 MG COMPRESSE RIVESTITE CON FILM [Concomitant]
     Active Substance: LOSARTAN POTASSIUM
  2. BISOPROLOL FUMARATE. [Concomitant]
     Active Substance: BISOPROLOL FUMARATE
  3. HUMALOG [Concomitant]
     Active Substance: INSULIN LISPRO
  4. SONGAR [Concomitant]
     Active Substance: TRIAZOLAM
  5. OLANZAPINE. [Suspect]
     Active Substance: OLANZAPINE
     Indication: PRODUCT USED FOR UNKNOWN INDICATION
     Dates: start: 20200101, end: 20200415
  6. MIRAPEXIN 0.18?MG TABLETS [Concomitant]
  7. PANTOPRAZOLE SODIUM SESQUIHYDRATE [Interacting]
     Active Substance: PANTOPRAZOLE SODIUM
     Indication: PRODUCT USED FOR UNKNOWN INDICATION
     Dates: start: 20200101, end: 20200415
  8. LEVOBREN [Interacting]
     Active Substance: LEVOSULPIRIDE
     Indication: PRODUCT USED FOR UNKNOWN INDICATION
     Route: 048
     Dates: start: 20200101, end: 20200415
  9. CARDURA [Concomitant]
     Active Substance: DOXAZOSIN MESYLATE
  10. LASIX [Concomitant]
     Active Substance: FUROSEMIDE
  11. BRIMICA GENUAIR 340 MICROGRAMS /12 MICROGRAMS INHALATION POWDER [Concomitant]
  12. ELIQUIS [Concomitant]
     Active Substance: APIXABAN

REACTIONS (2)
  - Electrocardiogram QT prolonged [Recovering/Resolving]
  - Drug interaction [Recovering/Resolving]

NARRATIVE: CASE EVENT DATE: 20200415
